FAERS Safety Report 11210634 (Version 11)
Quarter: 2016Q1

REPORT INFORMATION
  Report Type: Spontaneous
  Country: US (occurrence: US)
  Receive Date: 20150622
  Receipt Date: 20160211
  Transmission Date: 20160525
  Serious: Yes (Hospitalization, Other)
  Sender: FDA-Public Use
  Company Number: US-PFIZER INC-2015143904

PATIENT
  Age: 21 Year
  Sex: Female
  Weight: 68 kg

DRUGS (4)
  1. CLINDAMYCIN HCL [Suspect]
     Active Substance: CLINDAMYCIN HYDROCHLORIDE
     Indication: OROPHARYNGEAL PAIN
     Dosage: UNK
  2. ENBREL [Suspect]
     Active Substance: ETANERCEPT
     Indication: JUVENILE IDIOPATHIC ARTHRITIS
     Dosage: 50 MG, QWK
     Dates: start: 1997, end: 2005
  3. ZOVIRAX [Suspect]
     Active Substance: ACYCLOVIR
     Indication: OROPHARYNGEAL PAIN
     Dosage: UNK
  4. AUGMENTIN [Concomitant]
     Active Substance: AMOXICILLIN\CLAVULANATE POTASSIUM
     Indication: ADENOIDITIS
     Dosage: 875 MG, BID, FOR 10 DAYS

REACTIONS (88)
  - Pruritus [Unknown]
  - Fatigue [Unknown]
  - Drug hypersensitivity [Unknown]
  - Premenstrual dysphoric disorder [Unknown]
  - Depression [Unknown]
  - Pollakiuria [Unknown]
  - Chills [Unknown]
  - Ear pain [Unknown]
  - Palpitations [Unknown]
  - Bronchitis [Unknown]
  - Anaemia [Unknown]
  - Arthropathy [Unknown]
  - Oropharyngeal pain [Unknown]
  - Uterine leiomyoma [Unknown]
  - Dysmenorrhoea [Unknown]
  - Menorrhagia [Unknown]
  - Anxiety disorder [Unknown]
  - Cough [Unknown]
  - Dizziness [Unknown]
  - Rash [Unknown]
  - Blood disorder [Unknown]
  - Musculoskeletal stiffness [Unknown]
  - Burning sensation [Unknown]
  - Peripheral swelling [Unknown]
  - Haemolytic anaemia [Unknown]
  - Erythema [Unknown]
  - Premenstrual syndrome [Unknown]
  - Amenorrhoea [Unknown]
  - Irritable bowel syndrome [Unknown]
  - Abdominal discomfort [Unknown]
  - Urinary tract infection [Unknown]
  - Dysphagia [Unknown]
  - Joint swelling [Unknown]
  - Vaginal abscess [Unknown]
  - Adnexal torsion [Unknown]
  - Osteoarthritis [Unknown]
  - Proteinuria [Unknown]
  - Breast pain [Unknown]
  - Dysfunctional uterine bleeding [Unknown]
  - Vitamin B12 deficiency [Unknown]
  - Fall [Unknown]
  - Vulvovaginal mycotic infection [Unknown]
  - Arthritis [Unknown]
  - Breast calcifications [Unknown]
  - Dyspareunia [Unknown]
  - Joint injury [Unknown]
  - Squamous cell carcinoma of the tongue [Unknown]
  - Swelling face [Unknown]
  - Leukocytosis [Unknown]
  - Vitamin D deficiency [Unknown]
  - Pain [Unknown]
  - Breast cyst [Unknown]
  - Polycystic ovaries [Unknown]
  - Scar [Unknown]
  - Fibrocystic breast disease [Unknown]
  - Dyspnoea [Unknown]
  - Dysuria [Unknown]
  - Chest pain [Unknown]
  - Tooth fracture [Unknown]
  - Aphthous ulcer [Unknown]
  - Urticaria [Unknown]
  - Rhinitis allergic [Unknown]
  - Conjunctivitis [Unknown]
  - Stress [Unknown]
  - Gastrointestinal disorder [Unknown]
  - Sinusitis [Unknown]
  - Ovarian cyst ruptured [Recovering/Resolving]
  - Periorbital cellulitis [Unknown]
  - Bone disorder [Unknown]
  - Odynophagia [Unknown]
  - Pelvic pain [Unknown]
  - Menstruation irregular [Unknown]
  - Pupils unequal [Unknown]
  - Neck pain [Unknown]
  - Rhinorrhoea [Unknown]
  - Cholelithiasis [Unknown]
  - Vomiting [Recovered/Resolved]
  - Costochondritis [Unknown]
  - Breast hyperplasia [Unknown]
  - Arthralgia [Unknown]
  - Upper respiratory tract infection [Unknown]
  - Anaemia vitamin B12 deficiency [Unknown]
  - Mastication disorder [Unknown]
  - Hypertrophic scar [Unknown]
  - Abdominal pain [Unknown]
  - Pelvic pain [Unknown]
  - Limb injury [Unknown]
  - Oedema mucosal [Unknown]

NARRATIVE: CASE EVENT DATE: 20061107
